FAERS Safety Report 5338658-5 (Version None)
Quarter: 2007Q2

REPORT INFORMATION
  Report Type: 
  Country: None (occurrence: None)
  Receive Date: 20070530
  Receipt Date: 20060726
  Transmission Date: 20071010
  Serious: No
  Sender: FDA-Public Use
  Company Number: A0613706A

PATIENT
  Age: 32 Year
  Sex: Male

DRUGS (1)
  1. RETROVIR [Suspect]
     Indication: HIV INFECTION
     Route: 065

REACTIONS (1)
  - DRUG SCREEN POSITIVE [None]
